FAERS Safety Report 16726429 (Version 4)
Quarter: 2019Q3

REPORT INFORMATION
  Report Type: Spontaneous
  Country: CZ (occurrence: CZ)
  Receive Date: 20190821
  Receipt Date: 20190918
  Transmission Date: 20191005
  Serious: Yes (Other)
  Sender: FDA-Public Use
  Company Number: PHHY2019CZ191143

PATIENT
  Age: 45 Year
  Sex: Male

DRUGS (18)
  1. MEDROL [Suspect]
     Active Substance: METHYLPREDNISOLONE
     Indication: NEUROSARCOIDOSIS
     Dosage: 16 MG, QD
     Route: 065
     Dates: start: 2018
  2. SOLU-MEDROL [Suspect]
     Active Substance: METHYLPREDNISOLONE SODIUM SUCCINATE
     Indication: PULMONARY SARCOIDOSIS
     Dosage: 0.5 MG/KG, QD
     Route: 042
  3. FENTANYL MYLAN [Concomitant]
     Active Substance: FENTANYL
     Indication: PAIN
  4. HERPESIN [Concomitant]
     Active Substance: ACYCLOVIR
     Indication: ANTIVIRAL TREATMENT
     Dosage: UNK
     Route: 042
  5. METHOTREXATE. [Suspect]
     Active Substance: METHOTREXATE
     Indication: VISUAL IMPAIRMENT
  6. IBUPROFEN. [Concomitant]
     Active Substance: IBUPROFEN
     Indication: BACK PAIN
     Route: 065
  7. METHOTREXATE. [Suspect]
     Active Substance: METHOTREXATE
     Indication: PULMONARY SARCOIDOSIS
     Dosage: 30 MG, QD
     Route: 065
     Dates: start: 20180119
  8. DEXAMETHASONE. [Suspect]
     Active Substance: DEXAMETHASONE
     Indication: BACK PAIN
     Dosage: 8 MG, TID
     Route: 042
     Dates: start: 201712
  9. MEDROL [Suspect]
     Active Substance: METHYLPREDNISOLONE
     Dosage: 0.5 MG/KG, QD
     Route: 042
     Dates: start: 2018
  10. PREDNISONE. [Suspect]
     Active Substance: PREDNISONE
     Indication: NEUROSARCOIDOSIS
     Dosage: 60 MG, QD
     Route: 065
     Dates: start: 2018
  11. SOLU-MEDROL [Suspect]
     Active Substance: METHYLPREDNISOLONE SODIUM SUCCINATE
     Indication: NEUROSARCOIDOSIS
  12. MANNITOL. [Concomitant]
     Active Substance: MANNITOL
     Indication: PRODUCT USED FOR UNKNOWN INDICATION
     Dosage: UNK
     Route: 042
  13. METHOTREXATE. [Suspect]
     Active Substance: METHOTREXATE
     Indication: HYPOACUSIS
  14. PREDNISONE. [Suspect]
     Active Substance: PREDNISONE
     Indication: PULMONARY SARCOIDOSIS
     Dosage: 10 MG, QD
     Route: 065
     Dates: start: 201712
  15. PREDNISONE. [Suspect]
     Active Substance: PREDNISONE
     Indication: BACK PAIN
  16. METHOTREXATE. [Suspect]
     Active Substance: METHOTREXATE
     Indication: NEUROSARCOIDOSIS
     Dosage: 20 MG, QD
     Route: 065
     Dates: start: 2018
  17. MEDROL [Suspect]
     Active Substance: METHYLPREDNISOLONE
     Indication: PULMONARY SARCOIDOSIS
     Dosage: 32 MG, QD
     Route: 065
     Dates: start: 201712
  18. FENTANYL MYLAN [Concomitant]
     Active Substance: FENTANYL
     Indication: BACK PAIN
     Dosage: 50 UG, Q72H
     Route: 065
     Dates: start: 20171215

REACTIONS (5)
  - Visual impairment [Recovering/Resolving]
  - Cataract [Recovering/Resolving]
  - Back pain [Recovered/Resolved]
  - Product use in unapproved indication [Unknown]
  - Therapeutic response decreased [Unknown]

NARRATIVE: CASE EVENT DATE: 2018
